FAERS Safety Report 13758873 (Version 2)
Quarter: 2019Q2

REPORT INFORMATION
  Report Type: Spontaneous
  Country: FR (occurrence: FR)
  Receive Date: 20170717
  Receipt Date: 20190601
  Transmission Date: 20190711
  Serious: Yes (Hospitalization, Other)
  Sender: FDA-Public Use
  Company Number: FR-AUROBINDO-AUR-APL-2017-19430

PATIENT

DRUGS (2)
  1. PARACETAMOL [Suspect]
     Active Substance: ACETAMINOPHEN
     Indication: PAIN IN JAW
  2. PARACETAMOL [Suspect]
     Active Substance: ACETAMINOPHEN
     Indication: TOOTHACHE
     Dosage: 32 G, UNK TAKEN OVER 12 HOURS
     Route: 065

REACTIONS (11)
  - Hepatic enzyme increased [Recovering/Resolving]
  - Dizziness [Recovering/Resolving]
  - Asthenia [Recovering/Resolving]
  - Accidental overdose [Unknown]
  - Hyperhidrosis [Recovering/Resolving]
  - Intentional overdose [Recovering/Resolving]
  - Nausea [Recovering/Resolving]
  - Pallor [Recovering/Resolving]
  - Intentional product misuse [Recovering/Resolving]
  - Amylase increased [Recovering/Resolving]
  - Vomiting [Recovering/Resolving]
